FAERS Safety Report 9492177 (Version 1)
Quarter: 2013Q3

REPORT INFORMATION
  Report Type: Spontaneous
  Country: JP (occurrence: None)
  Receive Date: 20130827
  Receipt Date: 20130827
  Transmission Date: 20140515
  Serious: Yes (Other)
  Sender: FDA-Public Use
  Company Number: B0917127A

PATIENT
  Sex: 0

DRUGS (1)
  1. ZANAMIVIR [Suspect]
     Indication: INFLUENZA
     Route: 064

REACTIONS (2)
  - Renal cell carcinoma [None]
  - Maternal drugs affecting foetus [None]
